FAERS Safety Report 5975155-8 (Version None)
Quarter: 2008Q4

REPORT INFORMATION
  Report Type: 
  Country: None (occurrence: None)
  Receive Date: 20081202
  Receipt Date: 20080627
  Transmission Date: 20090506
  Serious: No
  Sender: FDA-Public Use
  Company Number: US-ABBOTT-08P-163-0459893-00

PATIENT
  Sex: Female

DRUGS (4)
  1. LUPRON DEPOT [Suspect]
     Indication: MENORRHAGIA
     Route: 030
     Dates: start: 20070608, end: 20080608
  2. LUPRON DEPOT [Suspect]
     Indication: THROMBOSIS
  3. WARFARIN SODIUM [Concomitant]
     Indication: DRUG USE FOR UNKNOWN INDICATION
     Route: 048
  4. WARFARIN SODIUM [Concomitant]
     Route: 048

REACTIONS (3)
  - DECUBITUS ULCER [None]
  - MENORRHAGIA [None]
  - THROMBOSIS [None]
